FAERS Safety Report 15020428 (Version 4)
Quarter: 2019Q3

REPORT INFORMATION
  Report Type: Spontaneous
  Country: None (occurrence: US)
  Receive Date: 20180618
  Receipt Date: 20190814
  Transmission Date: 20191004
  Serious: Yes (Life-Threatening, Hospitalization, Other)
  Sender: FDA-Public Use
  Company Number: US-ORION CORPORATION ORION PHARMA-18_00003833

PATIENT
  Age: 79 Year
  Sex: Female

DRUGS (4)
  1. PREDNISOLONE. [Concomitant]
     Active Substance: PREDNISOLONE
     Indication: RHEUMATOID ARTHRITIS
     Route: 065
     Dates: start: 2007
  2. HYDROXYCHLOROQUINE [Concomitant]
     Active Substance: HYDROXYCHLOROQUINE
     Indication: RHEUMATOID ARTHRITIS
     Route: 065
     Dates: start: 2007
  3. METHOTREXATE. [Suspect]
     Active Substance: METHOTREXATE
     Indication: RHEUMATOID ARTHRITIS
     Route: 048
     Dates: start: 2007
  4. PREDNISONE. [Concomitant]
     Active Substance: PREDNISONE
     Indication: RHEUMATOID ARTHRITIS
     Route: 065

REACTIONS (9)
  - Pneumothorax spontaneous [Recovered/Resolved]
  - Pulmonary hypertension [Unknown]
  - Emphysema [Unknown]
  - Respiratory failure [Unknown]
  - Bronchopleural fistula [Recovered/Resolved]
  - Pneumothorax [Recovering/Resolving]
  - Pulmonary fibrosis [Unknown]
  - Toxicity to various agents [Unknown]
  - Pleurisy [Unknown]

NARRATIVE: CASE EVENT DATE: 201706
